FAERS Safety Report 7425746-2 (Version None)
Quarter: 2011Q2

REPORT INFORMATION
  Report Type: 
  Country: None (occurrence: None)
  Receive Date: 20110420
  Receipt Date: 20110415
  Transmission Date: 20111010
  Serious: Yes (Hospitalization)
  Sender: FDA-Public Use
  Company Number: US-BRISTOL-MYERS SQUIBB COMPANY-15583271

PATIENT
  Age: 51 Year
  Sex: Male
  Weight: 96 kg

DRUGS (38)
  1. DEXAMETHASONE [Concomitant]
     Dates: start: 20110124
  2. GLIPIZIDE [Concomitant]
  3. METFORMIN [Concomitant]
  4. OXYCODONE HCL [Concomitant]
  5. METAXALONE [Concomitant]
  6. PROTONIX [Concomitant]
  7. SERTRALINE [Concomitant]
  8. SINGULAIR [Concomitant]
  9. OXYGEN [Concomitant]
  10. ALOXI [Concomitant]
     Dates: start: 20110228
  11. CISPLATIN [Suspect]
     Indication: NON-SMALL CELL LUNG CANCER
     Dosage: DAY 1, 8.DISCONTINUED ON 08FEB11
     Route: 042
     Dates: start: 20110124, end: 20110131
  12. ETOPOSIDE [Suspect]
     Indication: NON-SMALL CELL LUNG CANCER
     Dosage: DAY 1-5.DISCONTINUED ON 08FEB11
     Route: 042
     Dates: start: 20110124, end: 20110128
  13. INDERAL [Concomitant]
     Dates: end: 20110215
  14. LORATADINE [Concomitant]
  15. LYRICA [Concomitant]
  16. POTASSIUM CHLORIDE [Concomitant]
  17. PACLITAXEL [Suspect]
     Indication: NON-SMALL CELL LUNG CANCER
     Dates: start: 20110221
  18. FUROSEMIDE [Concomitant]
  19. NITROSTAT [Concomitant]
  20. DEXAMETHASONE [Concomitant]
     Dates: start: 20110228
  21. CYMBALTA [Concomitant]
  22. MILK OF MAGNESIA TAB [Concomitant]
  23. NORTRIPTYLINE [Concomitant]
  24. SEROQUEL [Concomitant]
  25. FAMOTIDINE [Concomitant]
     Dates: start: 20110228
  26. OXYCONTIN [Concomitant]
  27. ZOCOR [Concomitant]
  28. NICOTINE [Concomitant]
  29. BENADRYL [Concomitant]
     Dates: start: 20110228
  30. ALPRAZOLAM [Concomitant]
  31. DEPAKOTE [Concomitant]
  32. XALATAN [Concomitant]
  33. CARBOPLATIN [Suspect]
     Indication: NON-SMALL CELL LUNG CANCER
     Dates: start: 20110221
  34. ALBUTEROL [Concomitant]
  35. LUNESTA [Concomitant]
  36. FORMOTEROL FUMARATE [Concomitant]
  37. PROCHLORPERAZINE MALEATE [Concomitant]
  38. TAMSULOSIN [Concomitant]

REACTIONS (6)
  - PNEUMONIA [None]
  - FEBRILE NEUTROPENIA [None]
  - RENAL FAILURE ACUTE [None]
  - TINNITUS [None]
  - SEPSIS [None]
  - PANCYTOPENIA [None]
